FAERS Safety Report 4717774-2 (Version None)
Quarter: 2005Q3

REPORT INFORMATION
  Report Type: 
  Country: None (occurrence: None)
  Receive Date: 20050718
  Receipt Date: 20050718
  Transmission Date: 20060218
  Serious: No
  Sender: FDA-Public Use
  Company Number: None

PATIENT
  Age: 29 Year
  Sex: Female
  Weight: 77.5651 kg

DRUGS (1)
  1. ORTHO EVRA [Suspect]
     Indication: CONTRACEPTION
     Dosage: 1 PATCH EVERY 3 WEEKS TRANSDERMAL
     Route: 062
     Dates: start: 20041020, end: 20050717

REACTIONS (6)
  - ABDOMINAL PAIN [None]
  - HEADACHE [None]
  - MENSTRUATION IRREGULAR [None]
  - PREGNANCY ON ORAL CONTRACEPTIVE [None]
  - RASH [None]
  - UNINTENDED PREGNANCY [None]
